FAERS Safety Report 6796353-X (Version None)
Quarter: 2010Q2

REPORT INFORMATION
  Report Type: 
  Country: None (occurrence: None)
  Receive Date: 20100622
  Receipt Date: 20100611
  Transmission Date: 20101027
  Serious: Yes (Other)
  Sender: FDA-Public Use
  Company Number: 8053293

PATIENT
  Age: 51 Year
  Sex: Female

DRUGS (1)
  1. CERTOLIZUMAB PEGOL (CERTOLIZUMAB PEGOL) [Suspect]
     Indication: RHEUMATOID ARTHRITIS
     Dosage: (400 MG 1X/2 WEEKS, TWO DOSES ADMINISTERED SUBCUTANEOUS), (400 MG 1/MONTH SUBCUTANEOUS)
     Route: 058

REACTIONS (2)
  - FOOT FRACTURE [None]
  - SYNOVITIS [None]
